FAERS Safety Report 10998212 (Version 1)
Quarter: 2015Q2

REPORT INFORMATION
  Report Type: Spontaneous
  Country: US (occurrence: None)
  Receive Date: 20150407
  Receipt Date: 20150407
  Transmission Date: 20150821
  Serious: No
  Sender: FDA-Public Use
  Company Number: None

PATIENT
  Age: 52 Year
  Sex: Female
  Weight: 71.67 kg

DRUGS (2)
  1. BIOTENE (PASTE) [Suspect]
     Active Substance: SODIUM MONOFLUOROPHOSPHATE
     Indication: DRY MOUTH
     Dates: start: 20141215, end: 20150320
  2. EFFEXOR [Concomitant]
     Active Substance: VENLAFAXINE HYDROCHLORIDE

REACTIONS (5)
  - Oral discomfort [None]
  - Throat irritation [None]
  - Hypersensitivity [None]
  - Gingival pain [None]
  - Toothache [None]

NARRATIVE: CASE EVENT DATE: 20150105
